FAERS Safety Report 5017144-6 (Version None)
Quarter: 2006Q2

REPORT INFORMATION
  Report Type: 
  Country: None (occurrence: None)
  Receive Date: 20060602
  Receipt Date: 20060331
  Transmission Date: 20061013
  Serious: Yes (Hospitalization, Other)
  Sender: FDA-Public Use
  Company Number: NL-BOEHRINGER INGELHEIM PHARMACEUTICALS, INC.-2006-NL-00099NL

PATIENT
  Sex: Female
  Weight: 63 kg

DRUGS (1)
  1. SPIRIVA [Suspect]
     Dosage: 1DD 18MCG
     Dates: start: 20060313, end: 20060322

REACTIONS (2)
  - CHRONIC OBSTRUCTIVE PULMONARY DISEASE [None]
  - DYSPNOEA [None]
